FAERS Safety Report 8098626-X (Version None)
Quarter: 2012Q1

REPORT INFORMATION
  Report Type: 
  Country: None (occurrence: None)
  Receive Date: 20120129
  Receipt Date: 20111021
  Transmission Date: 20120608
  Serious: No
  Sender: FDA-Public Use
  Company Number: US-ABBOTT-11P-163-0867589-00

PATIENT
  Sex: Female
  Weight: 95.34 kg

DRUGS (10)
  1. HIAMAX [Concomitant]
     Indication: GASTRIC DISORDER
  2. HUMIRA [Suspect]
     Indication: RHEUMATOID ARTHRITIS
     Dates: start: 20110916
  3. PREDNISONE TAB [Concomitant]
     Indication: PAIN
  4. HYDROCHLOROTHIAZIDE [Concomitant]
     Indication: HYPERTENSION
  5. FISH OIL [Concomitant]
     Indication: PRODUCT USED FOR UNKNOWN INDICATION
  6. CELEBREX [Concomitant]
     Indication: PAIN
  7. L-LYSINE [Concomitant]
     Indication: HERPES ZOSTER
  8. PRILOSEC [Concomitant]
     Indication: GASTRIC DISORDER
  9. UNKNOWN MEDICATION FOR STOMACH [Concomitant]
     Indication: GASTRIC DISORDER
  10. MULTI-VITAMINS [Concomitant]
     Indication: PRODUCT USED FOR UNKNOWN INDICATION

REACTIONS (1)
  - THROAT IRRITATION [None]
